FAERS Safety Report 9820943 (Version 1)
Quarter: 2014Q1

REPORT INFORMATION
  Report Type: Spontaneous
  Country: US (occurrence: None)
  Receive Date: 20140114
  Receipt Date: 20140114
  Transmission Date: 20141002
  Serious: Yes (Life-Threatening, Other)
  Sender: FDA-Public Use
  Company Number: None

PATIENT
  Age: 44 Year
  Sex: Female
  Weight: 63.5 kg

DRUGS (10)
  1. KENALOG [Suspect]
     Indication: ASTHMA
     Route: 030
     Dates: start: 20131209, end: 20131209
  2. BUDESONIDE [Suspect]
     Indication: ASTHMA
     Dates: start: 20140102, end: 20140109
  3. BUDESONIDE [Suspect]
     Indication: COUGH
     Dates: start: 20140102, end: 20140109
  4. BUDESONIDE [Suspect]
     Dates: start: 20140102, end: 20140109
  5. PREDNISONE [Concomitant]
  6. ALBUTEROL INHALER [Concomitant]
  7. MOTRIN [Concomitant]
  8. GUAFENISEN/CODEINE [Concomitant]
  9. TESSALON PERL [Concomitant]
  10. VITAMIN C [Concomitant]

REACTIONS (8)
  - Swelling face [None]
  - Insomnia [None]
  - Feeling abnormal [None]
  - Confusional state [None]
  - Vaginal haemorrhage [None]
  - Depression [None]
  - Mood altered [None]
  - Abnormal behaviour [None]
